FAERS Safety Report 23218350 (Version 1)
Quarter: 2023Q4

REPORT INFORMATION
  Report Type: Spontaneous
  Country: US (occurrence: US)
  Receive Date: 20231122
  Receipt Date: 20231122
  Transmission Date: 20240109
  Serious: No
  Sender: FDA-Public Use
  Company Number: US-AUROBINDO-AUR-APL-2023-043430

PATIENT
  Age: 73 Year
  Sex: Female

DRUGS (1)
  1. RISEDRONATE SODIUM [Suspect]
     Active Substance: RISEDRONATE SODIUM
     Indication: Osteoporosis
     Dosage: UNK (01 PER MONTH)
     Route: 065
     Dates: start: 20220831, end: 20230502

REACTIONS (1)
  - Tooth disorder [Not Recovered/Not Resolved]
